FAERS Safety Report 11160267 (Version 2)
Quarter: 2015Q2

REPORT INFORMATION
  Report Type: Spontaneous
  Country: JP (occurrence: JP)
  Receive Date: 20150603
  Receipt Date: 20150621
  Transmission Date: 20150821
  Serious: Yes (Life-Threatening, Hospitalization)
  Sender: FDA-Public Use
  Company Number: JP-AMGEN-JPNSP2015053902

PATIENT
  Age: 71 Year
  Sex: Female

DRUGS (2)
  1. REVOLADE [Concomitant]
     Active Substance: ELTROMBOPAG
     Dosage: UNK
     Route: 048
  2. ROMIPLATE [Suspect]
     Active Substance: ROMIPLOSTIM
     Indication: IMMUNE THROMBOCYTOPENIC PURPURA
     Dosage: 250 MUG, EVERY 10 DAYS
     Route: 058

REACTIONS (1)
  - Cerebral haemorrhage [Not Recovered/Not Resolved]
